FAERS Safety Report 6300725-7 (Version None)
Quarter: 2009Q3

REPORT INFORMATION
  Report Type: 
  Country: None (occurrence: None)
  Receive Date: 20090807
  Receipt Date: 20090729
  Transmission Date: 20100115
  Serious: Yes (Hospitalization)
  Sender: FDA-Public Use
  Company Number: US-BIOGENIDEC-151142

PATIENT
  Age: 53 Year
  Sex: Female
  Weight: 115 kg

DRUGS (11)
  1. AVONEX [Suspect]
     Indication: MULTIPLE SCLEROSIS
     Route: 030
     Dates: start: 19970701, end: 20010101
  2. AVONEX [Suspect]
     Route: 030
     Dates: start: 20010701, end: 20040101
  3. AVONEX [Suspect]
     Route: 030
     Dates: start: 20040101, end: 20040801
  4. AVONEX [Suspect]
     Route: 030
     Dates: start: 20040801, end: 20040801
  5. AVONEX [Suspect]
     Route: 030
     Dates: start: 20040801, end: 20040903
  6. AVONEX [Suspect]
     Route: 030
     Dates: start: 20010201
  7. AVONEX [Suspect]
     Route: 030
     Dates: end: 20050601
  8. AVONEX [Suspect]
     Route: 030
     Dates: start: 20050601, end: 20090715
  9. ZOLOFT [Concomitant]
     Indication: DEPRESSION
  10. DITROPAN XL [Concomitant]
     Indication: BLADDER DISORDER
  11. PREMARIN [Concomitant]
     Indication: HORMONE REPLACEMENT THERAPY
     Dates: start: 19930101

REACTIONS (19)
  - ABDOMINAL RIGIDITY [None]
  - ARTHRITIS [None]
  - ATELECTASIS [None]
  - BACK PAIN [None]
  - CHILLS [None]
  - DEPRESSION [None]
  - ERYTHEMA NODOSUM [None]
  - HAEMORRHAGE [None]
  - HERPES ZOSTER [None]
  - HYPOTHYROIDISM [None]
  - INFLUENZA LIKE ILLNESS [None]
  - INJECTION SITE REACTION [None]
  - INTERVERTEBRAL DISC DEGENERATION [None]
  - MEMORY IMPAIRMENT [None]
  - MULTIPLE SCLEROSIS [None]
  - PNEUMONIA [None]
  - POST PROCEDURAL COMPLICATION [None]
  - SCIATIC NERVE INJURY [None]
  - WEIGHT INCREASED [None]
